FAERS Safety Report 8831653 (Version 4)
Quarter: 2013Q2

REPORT INFORMATION
  Report Type: Report from Study
  Country: US (occurrence: US)
  Receive Date: 20121009
  Receipt Date: 20130621
  Transmission Date: 20140414
  Serious: Yes (Hospitalization, Disabling)
  Sender: FDA-Public Use
  Company Number: US-VIIV HEALTHCARE LIMITED-B0836171A

PATIENT
  Age: 52 Year
  Sex: Male
  Weight: 100.9 kg

DRUGS (13)
  1. MARAVIROC [Suspect]
     Indication: HIV INFECTION
     Dosage: 150MG TWICE PER DAY
     Route: 048
     Dates: start: 20090929, end: 20120912
  2. EPZICOM [Concomitant]
     Dates: start: 20060208
  3. DARUNAVIR [Concomitant]
     Dosage: 800MG PER DAY
     Dates: start: 20100414, end: 20120912
  4. NORVIR [Concomitant]
     Dosage: 100MG PER DAY
     Dates: start: 20100414, end: 20120912
  5. NORTRIPTYLINE [Concomitant]
     Indication: DEPRESSION
     Route: 048
  6. METFORMIN [Concomitant]
     Indication: DIABETES MELLITUS
     Route: 048
  7. ESCITALOPRAM [Concomitant]
     Indication: DEPRESSION
     Route: 048
  8. LORAZEPAM [Concomitant]
     Indication: ANXIETY
     Route: 048
  9. LYRICA [Concomitant]
     Indication: PAIN
     Route: 048
  10. PRAVACHOL [Concomitant]
     Indication: HYPERTRIGLYCERIDAEMIA
     Route: 048
     Dates: start: 20091014
  11. LOPID [Concomitant]
     Indication: HYPERTRIGLYCERIDAEMIA
     Route: 048
     Dates: start: 20091111
  12. PRILOSEC [Concomitant]
     Indication: GASTROOESOPHAGEAL REFLUX DISEASE
     Route: 048
     Dates: start: 20090909
  13. VIT D [Concomitant]
     Indication: IMMUNOLOGY TEST
     Route: 048
     Dates: start: 20100210

REACTIONS (2)
  - Pancreatitis [Recovered/Resolved]
  - Pseudocyst [Recovered/Resolved]
